FAERS Safety Report 8580840-8 (Version None)
Quarter: 2012Q3

REPORT INFORMATION
  Report Type: 
  Country: None (occurrence: None)
  Receive Date: 20120726
  Receipt Date: 20120717
  Transmission Date: 20120928
  Serious: Yes (Disabling)
  Sender: FDA-Public Use
  Company Number: AUR-APL-2012-03107

PATIENT
  Age: 72 Year
  Sex: Female
  Weight: 71 kg

DRUGS (4)
  1. TOLTERODINE TARTRATE [Concomitant]
  2. RALOXIFENE HCL [Concomitant]
  3. TERBINAFINE HCL [Suspect]
     Indication: ONYCHOMYCOSIS
     Dosage: 250 MG (250 MG, 1 IN 1 D), ORAL
     Route: 048
     Dates: start: 20120601, end: 20120618
  4. OMEPRAZOLE [Concomitant]

REACTIONS (5)
  - ERYTHEMA [None]
  - SKIN EXFOLIATION [None]
  - INSOMNIA [None]
  - RASH PUSTULAR [None]
  - PRURITUS [None]
